FAERS Safety Report 5326707-X (Version None)
Quarter: 2007Q2

REPORT INFORMATION
  Report Type: 
  Country: None (occurrence: None)
  Receive Date: 20070516
  Receipt Date: 20070509
  Transmission Date: 20071010
  Serious: Yes (Hospitalization)
  Sender: FDA-Public Use
  Company Number: CA-BOEHRINGER INGELHEIM PHARMACEUTICALS, INC.-2007-CN-00349CN

PATIENT
  Sex: Male

DRUGS (4)
  1. MICARDIS HCT [Suspect]
     Dates: start: 20060101, end: 20060902
  2. ASPIRIN [Concomitant]
  3. BETNOVATE [Concomitant]
  4. DOVONEX [Concomitant]
     Indication: PSORIASIS

REACTIONS (2)
  - HYPOTENSION [None]
  - MYOCARDIAL INFARCTION [None]
